FAERS Safety Report 24166004 (Version 2)
Quarter: 2025Q3

REPORT INFORMATION
  Report Type: Spontaneous
  Country: US (occurrence: US)
  Receive Date: 20240802
  Receipt Date: 20250804
  Transmission Date: 20251020
  Serious: No
  Sender: ACCORD
  Company Number: US-Accord-422337

PATIENT
  Age: 60 Year
  Sex: Female

DRUGS (5)
  1. DOCETAXEL [Suspect]
     Active Substance: DOCETAXEL
     Indication: Breast cancer
     Dates: start: 20171025, end: 20171025
  2. ADRIAMYCIN [Suspect]
     Active Substance: DOXORUBICIN HYDROCHLORIDE
     Indication: Breast cancer
  3. CYTOXAN [Suspect]
     Active Substance: CYCLOPHOSPHAMIDE
     Indication: Breast cancer
  4. DOCETAXEL [Suspect]
     Active Substance: DOCETAXEL
     Indication: Breast cancer
     Dates: start: 20171115, end: 20171115
  5. DOCETAXEL [Suspect]
     Active Substance: DOCETAXEL
     Indication: Breast cancer
     Dates: start: 20171206, end: 20171206

REACTIONS (1)
  - Lacrimal structure injury [Not Recovered/Not Resolved]

NARRATIVE: CASE EVENT DATE: 20171001
